FAERS Safety Report 23667470 (Version 1)
Quarter: 2024Q1

REPORT INFORMATION
  Report Type: Report from Study
  Country: US (occurrence: US)
  Receive Date: 20240325
  Receipt Date: 20240325
  Transmission Date: 20240410
  Serious: No
  Sender: FDA-Public Use
  Company Number: US-BIOVITRUM-2024-US-001563

PATIENT
  Age: 45 Year
  Sex: Male

DRUGS (1)
  1. KINERET [Suspect]
     Active Substance: ANAKINRA
     Indication: Gout
     Dosage: ONCE DAILY FOR 7 DAYS AS NEEDED
     Route: 058
     Dates: start: 20230811

REACTIONS (3)
  - Intentional product misuse [Not Recovered/Not Resolved]
  - Product use issue [Unknown]
  - Skin discolouration [Unknown]

NARRATIVE: CASE EVENT DATE: 20230811
